FAERS Safety Report 7291466-0 (Version None)
Quarter: 2011Q1

REPORT INFORMATION
  Report Type: 
  Country: None (occurrence: None)
  Receive Date: 20110214
  Receipt Date: 20110202
  Transmission Date: 20110831
  Serious: Yes (Other)
  Sender: FDA-Public Use
  Company Number: US-ELI_LILLY_AND_COMPANY-US201102000881

PATIENT
  Age: 55 Year
  Sex: Female

DRUGS (1)
  1. CYMBALTA [Suspect]
     Indication: PAIN IN EXTREMITY
     Dosage: 60 MG, DAILY (1/D)
     Dates: start: 20110126, end: 20110126

REACTIONS (9)
  - BLOOD PRESSURE INCREASED [None]
  - MALAISE [None]
  - VOMITING [None]
  - HEART RATE INCREASED [None]
  - FEELING HOT [None]
  - HYPERSENSITIVITY [None]
  - OFF LABEL USE [None]
  - ABDOMINAL PAIN UPPER [None]
  - MOBILITY DECREASED [None]
